FAERS Safety Report 9569494 (Version 2)
Quarter: 2013Q3

REPORT INFORMATION
  Report Type: Spontaneous
  Country: US (occurrence: US)
  Receive Date: 20130930
  Receipt Date: 20130930
  Transmission Date: 20140515
  Serious: No
  Sender: FDA-Public Use
  Company Number: US-AMGEN-USASP2013063412

PATIENT
  Age: 62 Year
  Sex: Female
  Weight: 101.5 kg

DRUGS (11)
  1. ENBREL [Suspect]
     Indication: RHEUMATOID ARTHRITIS
     Dosage: 50 MG, QWK
     Route: 058
     Dates: start: 20130615
  2. METHOTREXATE [Concomitant]
     Indication: RHEUMATOID ARTHRITIS
     Dosage: 20 MG, QWK
     Route: 048
  3. OMEPRAZOLE [Concomitant]
     Indication: GASTROOESOPHAGEAL REFLUX DISEASE
     Dosage: 20 MG, UNK
     Route: 048
  4. RANTIDINE [Concomitant]
     Dosage: 150 MG, QD
     Route: 048
  5. ACETAMINOFEN CON CODEINA [Concomitant]
     Dosage: UNK UNK, AS NECESSARY
     Route: 048
  6. ADVAIR [Concomitant]
     Route: 045
  7. SINGULAR [Concomitant]
     Indication: HYPERSENSITIVITY
     Dosage: 10 MG, QD
     Route: 048
  8. BENADRYL                           /00000402/ [Concomitant]
     Dosage: UNK, AS NECESSARY
     Route: 048
  9. FOLIC ACID [Concomitant]
     Dosage: 01 MG, QD
     Route: 048
  10. HCT [Concomitant]
     Dosage: 25 MG, QD
     Route: 048
  11. K                                  /00031401/ [Concomitant]
     Dosage: 20 MG, QD
     Route: 048

REACTIONS (3)
  - Headache [Not Recovered/Not Resolved]
  - Dizziness [Not Recovered/Not Resolved]
  - Nausea [Not Recovered/Not Resolved]
